FAERS Safety Report 6169837-5 (Version None)
Quarter: 2009Q2

REPORT INFORMATION
  Report Type: 
  Country: None (occurrence: None)
  Receive Date: 20090428
  Receipt Date: 20090413
  Transmission Date: 20091009
  Serious: Yes (Hospitalization)
  Sender: FDA-Public Use
  Company Number: DL2009210

PATIENT
  Age: 25 Year
  Sex: Female

DRUGS (4)
  1. MIFEPREX [Suspect]
     Indication: ABORTION INDUCED
     Dosage: 200 MG, ORAL
     Route: 048
     Dates: start: 20090131
  2. MISOPROSTOL [Suspect]
     Dosage: 800 MCG, 400MCG, BUCCAL
     Route: 002
     Dates: start: 20090201
  3. MISOPROSTOL [Suspect]
     Dosage: 800 MCG, 400MCG, BUCCAL
     Route: 002
     Dates: start: 20090221
  4. DOXYCYCLINE [Concomitant]

REACTIONS (5)
  - ABORTION INCOMPLETE [None]
  - ANAEMIA [None]
  - DIZZINESS [None]
  - HAEMORRHAGE [None]
  - NAUSEA [None]
